FAERS Safety Report 12626819 (Version 1)
Quarter: 2016Q3

REPORT INFORMATION
  Report Type: Spontaneous
  Country: DE (occurrence: DE)
  Receive Date: 20160805
  Receipt Date: 20160805
  Transmission Date: 20161109
  Serious: Yes (Disabling, Other)
  Sender: FDA-Public Use
  Company Number: DE-MYLANLABS-2016M1031583

PATIENT

DRUGS (2)
  1. CIPRODURA 250 MG FILMTABLETTEN [Suspect]
     Active Substance: CIPROFLOXACIN HYDROCHLORIDE
     Indication: BACTERIAL TEST
     Dosage: UNK
  2. DULOXETIN HENNIG [Interacting]
     Active Substance: DULOXETINE HYDROCHLORIDE
     Indication: COMPLEX REGIONAL PAIN SYNDROME
     Dosage: 30 MG, UNK
     Route: 048

REACTIONS (23)
  - Urinary tract infection bacterial [Unknown]
  - Dry mouth [Unknown]
  - Pharyngitis [Unknown]
  - Throat tightness [Unknown]
  - Libido disorder [Unknown]
  - Apathy [Unknown]
  - Diarrhoea [Unknown]
  - Drug interaction [Unknown]
  - Constipation [Unknown]
  - Bedridden [Unknown]
  - Bruxism [Unknown]
  - Hyperhidrosis [Unknown]
  - Pollakiuria [Unknown]
  - Somnolence [Unknown]
  - Dysuria [Unknown]
  - Muscle twitching [Unknown]
  - Myalgia [Unknown]
  - Ear discomfort [Unknown]
  - Abdominal distension [Unknown]
  - Anorgasmia [Unknown]
  - Dysphonia [Unknown]
  - Muscle spasms [Unknown]
  - Tremor [Unknown]

NARRATIVE: CASE EVENT DATE: 20160629
